FAERS Safety Report 23725120 (Version 2)
Quarter: 2024Q2

REPORT INFORMATION
  Report Type: Spontaneous
  Country: US (occurrence: US)
  Receive Date: 20240410
  Receipt Date: 20240502
  Transmission Date: 20240716
  Serious: No
  Sender: FDA-Public Use
  Company Number: US-VIIV HEALTHCARE LIMITED-US2024AMR041883

PATIENT
  Sex: Male

DRUGS (2)
  1. RILPIVIRINE [Suspect]
     Active Substance: RILPIVIRINE
     Indication: HIV infection
     Dosage: UNK UNK, Q2M,CABOTEGRAVIR 600 MG (3 ML) AND RILPIVIRINE 900 MG (3ML),EVERY OTHER MONTH
     Route: 030
     Dates: start: 202403
  2. CABOTEGRAVIR [Suspect]
     Active Substance: CABOTEGRAVIR
     Indication: HIV infection
     Dosage: UNK UNK, Q2M,CABOTEGRAVIR 600 MG (3 ML) AND RILPIVIRINE 900 MG (3ML),EVERY OTHER MONTH
     Route: 030
     Dates: start: 202403

REACTIONS (2)
  - Dysphagia [Unknown]
  - Dysarthria [Unknown]
